FAERS Safety Report 9274588 (Version 1)
Quarter: 2013Q2

REPORT INFORMATION
  Report Type: Report from Study
  Country: BR (occurrence: BR)
  Receive Date: 20130507
  Receipt Date: 20130507
  Transmission Date: 20140414
  Serious: Yes (Death, Other)
  Sender: FDA-Public Use
  Company Number: BR-ROCHE-779551

PATIENT
  Age: 33 Year
  Sex: Male
  Weight: 61 kg

DRUGS (15)
  1. ACTEMRA [Suspect]
     Indication: PRODUCT USED FOR UNKNOWN INDICATION
     Dosage: ROUTE: ENDOVENOUS, THERAPY: DISCONTINUED
     Route: 050
     Dates: start: 20101101
  2. ZANIDIP [Concomitant]
     Route: 065
  3. CHLORTHALIDONE [Concomitant]
     Route: 065
  4. PREDSIM [Concomitant]
     Route: 065
  5. OMEPRAZOLE [Concomitant]
     Route: 065
  6. FAMOTIDINE [Concomitant]
     Route: 065
  7. ALENDRONATE SODIUM [Concomitant]
     Route: 065
  8. METHOTREXATE [Concomitant]
     Route: 065
  9. ARAVA [Concomitant]
     Route: 065
  10. ACETYLSALICYLIC ACID [Concomitant]
     Route: 065
  11. ATENOLOL [Concomitant]
     Route: 065
  12. LITOCIT [Concomitant]
     Route: 065
  13. FOLIC ACID [Concomitant]
     Route: 065
  14. VITAMIN D3 [Concomitant]
     Route: 065
  15. LIPITOR [Concomitant]
     Route: 065

REACTIONS (4)
  - Death [Fatal]
  - Pneumonia [Recovering/Resolving]
  - Chronic sinusitis [Recovering/Resolving]
  - Candida infection [Recovering/Resolving]
